FAERS Safety Report 13744558 (Version 1)
Quarter: 2017Q3

REPORT INFORMATION
  Report Type: Report from Study
  Country: US (occurrence: US)
  Receive Date: 20170712
  Receipt Date: 20170712
  Transmission Date: 20171127
  Serious: Yes (Other)
  Sender: FDA-Public Use
  Company Number: US-ROCHE-1961240

PATIENT
  Sex: Male

DRUGS (27)
  1. LEVAQUIN [Concomitant]
     Active Substance: LEVOFLOXACIN
     Route: 065
  2. MAPAP [Concomitant]
     Active Substance: ACETAMINOPHEN
     Route: 065
  3. AMLODIPINE [Concomitant]
     Active Substance: AMLODIPINE BESYLATE
     Route: 065
  4. FLONASE [Concomitant]
     Active Substance: FLUTICASONE PROPIONATE
     Route: 065
  5. ALBUTEROL SOLUTION [Concomitant]
     Route: 065
  6. CYMBALTA [Concomitant]
     Active Substance: DULOXETINE HYDROCHLORIDE
     Route: 065
  7. PROTONIX [Concomitant]
     Active Substance: PANTOPRAZOLE SODIUM
     Route: 065
  8. FLOMAX [Concomitant]
     Active Substance: TAMSULOSIN HYDROCHLORIDE
     Route: 065
  9. KLONOPIN [Suspect]
     Active Substance: CLONAZEPAM
     Indication: PRODUCT USED FOR UNKNOWN INDICATION
     Route: 065
  10. ZOCOR [Concomitant]
     Active Substance: SIMVASTATIN
     Route: 065
  11. METOLAZONE. [Concomitant]
     Active Substance: METOLAZONE
     Route: 065
  12. LOPRESSOR [Concomitant]
     Active Substance: METOPROLOL TARTRATE
     Route: 065
  13. VENTOLIN HFA [Concomitant]
     Active Substance: ALBUTEROL SULFATE
     Dosage: 4 TIMES A DAY AS NEEDED
     Route: 050
  14. ARICEPT [Concomitant]
     Active Substance: DONEPEZIL HYDROCHLORIDE
     Route: 065
  15. LASIX [Concomitant]
     Active Substance: FUROSEMIDE
     Route: 065
  16. SINGULAIR [Concomitant]
     Active Substance: MONTELUKAST SODIUM
     Route: 065
  17. PREDNISONE. [Concomitant]
     Active Substance: PREDNISONE
     Dosage: FOR ONE MONTH
     Route: 065
  18. COZAAR [Concomitant]
     Active Substance: LOSARTAN POTASSIUM
     Route: 065
  19. NEURONTIN [Concomitant]
     Active Substance: GABAPENTIN
     Route: 065
  20. TESSALON [Concomitant]
     Active Substance: BENZONATATE
     Route: 065
  21. KETOROLAC [Suspect]
     Active Substance: KETOROLAC\KETOROLAC TROMETHAMINE
     Indication: PRODUCT USED FOR UNKNOWN INDICATION
     Route: 065
  22. SPIRIVA [Concomitant]
     Active Substance: TIOTROPIUM BROMIDE MONOHYDRATE
     Route: 065
  23. DULERA [Concomitant]
     Active Substance: FORMOTEROL FUMARATE DIHYDRATE\MOMETASONE FUROATE
     Dosage: 1 PUFF 2 TIMES A DAY
     Route: 050
  24. MORPHINE SULFATE. [Concomitant]
     Active Substance: MORPHINE SULFATE
     Route: 065
  25. K-DUR 20 [Concomitant]
     Route: 065
  26. PEGASYS [Suspect]
     Active Substance: PEGINTERFERON ALFA-2A
     Indication: CHRONIC HEPATITIS C
     Dosage: ONGOING:UNKNOWN
     Route: 065
     Dates: start: 2011
  27. XALATAN [Concomitant]
     Active Substance: LATANOPROST
     Route: 047

REACTIONS (1)
  - Idiopathic pulmonary fibrosis [Unknown]
